FAERS Safety Report 14125707 (Version 6)
Quarter: 2018Q2

REPORT INFORMATION
  Report Type: Spontaneous
  Country: US (occurrence: US)
  Receive Date: 20171025
  Receipt Date: 20180618
  Transmission Date: 20180711
  Serious: Yes (Other)
  Sender: FDA-Public Use
  Company Number: US-GLAXOSMITHKLINE-US2017GSK163703

PATIENT
  Sex: Female
  Weight: 78.46 kg

DRUGS (8)
  1. LAMOTRIGINE. [Suspect]
     Active Substance: LAMOTRIGINE
     Dosage: 75 MG, UNK
     Route: 065
  2. LAMICTAL [Suspect]
     Active Substance: LAMOTRIGINE
     Dosage: 100 MG, UNK
     Route: 065
  3. LAMICTAL [Suspect]
     Active Substance: LAMOTRIGINE
     Indication: PRODUCT USED FOR UNKNOWN INDICATION
     Dosage: UNK
     Route: 065
  4. LAMOTRIGINE. [Suspect]
     Active Substance: LAMOTRIGINE
     Indication: SEIZURE
     Dosage: 25 MG, QD
     Route: 048
  5. LAMOTRIGINE. [Suspect]
     Active Substance: LAMOTRIGINE
     Indication: ADJUSTMENT DISORDER WITH DEPRESSED MOOD
     Dosage: 50 MG, UNK
     Route: 065
  6. LAMICTAL [Suspect]
     Active Substance: LAMOTRIGINE
     Indication: PRODUCT USED FOR UNKNOWN INDICATION
     Dosage: 25 MG, UNK
     Route: 065
  7. LAMICTAL [Suspect]
     Active Substance: LAMOTRIGINE
     Dosage: 50 MG, UNK
     Route: 065
  8. LAMOTRIGINE. [Suspect]
     Active Substance: LAMOTRIGINE
     Dosage: 100 MG, TID
     Route: 048

REACTIONS (25)
  - Blister [Unknown]
  - Papule [Unknown]
  - Dementia [Unknown]
  - Injury [Unknown]
  - Acne [Unknown]
  - Conjunctival oedema [Unknown]
  - Drug hypersensitivity [Unknown]
  - Migraine [Unknown]
  - Ocular hyperaemia [Unknown]
  - Lip swelling [Unknown]
  - Entropion [Unknown]
  - Rash generalised [Unknown]
  - Conjunctivitis [Unknown]
  - Injury of conjunctiva [Unknown]
  - Dry eye [Unknown]
  - Blindness [Unknown]
  - Seizure [Unknown]
  - Stevens-Johnson syndrome [Unknown]
  - Skin lesion [Unknown]
  - Swelling face [Unknown]
  - Toxic epidermal necrolysis [Unknown]
  - Craniocerebral injury [Unknown]
  - Skin exfoliation [Unknown]
  - Nerve injury [Unknown]
  - Symblepharon [Unknown]
